FAERS Safety Report 17157234 (Version 1)
Quarter: 2019Q4

REPORT INFORMATION
  Report Type: Spontaneous
  Country: US (occurrence: US)
  Receive Date: 20191121
  Receipt Date: 20191121
  Transmission Date: 20200122
  Serious: No
  Sender: FDA-Public Use
  Company Number: None

PATIENT
  Sex: Male

DRUGS (5)
  1. PREDNISONE. [Concomitant]
     Active Substance: PREDNISONE
  2. HUMIRA [Suspect]
     Active Substance: ADALIMUMAB
     Indication: URTICARIA
     Route: 058
     Dates: start: 20190906
  3. METHOTREXATE. [Concomitant]
     Active Substance: METHOTREXATE
  4. RESTASIS [Concomitant]
     Active Substance: CYCLOSPORINE
  5. TACROLIMUS-DC [Concomitant]

REACTIONS (2)
  - Product quality issue [None]
  - Haemorrhage [None]
